FAERS Safety Report 9706560 (Version 2)
Quarter: 2013Q4

REPORT INFORMATION
  Report Type: Spontaneous
  Country: PT (occurrence: PT)
  Receive Date: 20131125
  Receipt Date: 20131125
  Transmission Date: 20140711
  Serious: Yes (Other)
  Sender: FDA-Public Use
  Company Number: PT-ROCHE-1299029

PATIENT
  Sex: Female

DRUGS (5)
  1. PERJETA [Suspect]
     Indication: BREAST CANCER METASTATIC
     Dosage: LOADING DOSE (2 AMPOULES) FOR CYCLE 1 ONLY.
     Route: 042
  2. PERJETA [Suspect]
     Dosage: MAINTENANCE DOSE (1 AMPOULE)
     Route: 042
  3. HERCEPTIN [Suspect]
     Indication: BREAST CANCER METASTATIC
     Dosage: LOADING DOSE FOR CYCLE 1 ONLY.
     Route: 042
  4. HERCEPTIN [Suspect]
     Dosage: MAINTENANCE DOSE
     Route: 042
  5. ABRAXANE [Concomitant]
     Indication: BREAST CANCER METASTATIC

REACTIONS (2)
  - Diarrhoea [Recovered/Resolved]
  - Pneumonitis [Unknown]
